FAERS Safety Report 16871366 (Version 1)
Quarter: 2019Q4

REPORT INFORMATION
  Report Type: Report from Study
  Country: ES (occurrence: ES)
  Receive Date: 20191001
  Receipt Date: 20191001
  Transmission Date: 20200122
  Serious: Yes (Hospitalization)
  Sender: FDA-Public Use
  Company Number: ES-TEVA-2019-ES-1115824

PATIENT
  Age: 66 Year
  Sex: Female

DRUGS (6)
  1. FORTECORTIN 4 MG COMPRIMIDOS, 30 COMPRIMIDOS [Interacting]
     Active Substance: DEXAMETHASONE
     Indication: GLIOBLASTOMA
     Dosage: 4 MILLIGRAM
     Route: 048
     Dates: start: 201902
  2. PARACETAMOL (12A) [Concomitant]
     Active Substance: ACETAMINOPHEN
     Indication: PAIN
     Route: 048
  3. IBUPROFENO (1769A) [Suspect]
     Active Substance: IBUPROFEN
     Indication: TOOTHACHE
     Dosage: 600 MILLIGRAM
     Route: 048
     Dates: start: 20190424, end: 20190429
  4. LOSART?N + HIDROCLOROTIAZIDA [Concomitant]
     Active Substance: HYDROCHLOROTHIAZIDE\LOSARTAN
     Indication: HYPERTENSION
     Route: 048
  5. TINZAPARINA SODICA (2752SO) [Interacting]
     Active Substance: TINZAPARIN SODIUM
     Route: 058
     Dates: start: 20190320, end: 20190429
  6. AMOXICILINA (108A) [Concomitant]
     Active Substance: AMOXICILLIN
     Indication: TOOTH ABSCESS
     Route: 048
     Dates: start: 20190425, end: 20190429

REACTIONS (2)
  - Upper gastrointestinal haemorrhage [Recovered/Resolved]
  - Drug interaction [Unknown]

NARRATIVE: CASE EVENT DATE: 20190430
